FAERS Safety Report 19313550 (Version 1)
Quarter: 2021Q2

REPORT INFORMATION
  Report Type: Report from Study
  Country: IT (occurrence: IT)
  Receive Date: 20210527
  Receipt Date: 20210527
  Transmission Date: 20210717
  Serious: Yes (Other)
  Sender: FDA-Public Use
  Company Number: IT-TEVA-2021-IT-1915270

PATIENT
  Age: 58 Year
  Sex: Female

DRUGS (2)
  1. CARBOPLATIN. [Suspect]
     Active Substance: CARBOPLATIN
     Indication: OVARIAN CANCER
     Dosage: 1 DF
     Route: 042
     Dates: start: 20210304, end: 20210304
  2. OKI 80 MG GRANULATO PER SOLUZIONE ORALE [Concomitant]
     Active Substance: KETOPROFEN LYSINE
     Indication: ABDOMINAL PAIN
     Dosage: 1 DF
     Route: 048
     Dates: start: 20210320, end: 20210320

REACTIONS (4)
  - Diarrhoea [Recovering/Resolving]
  - Abdominal pain [Recovering/Resolving]
  - Faeces hard [Recovering/Resolving]
  - Flatulence [Recovering/Resolving]

NARRATIVE: CASE EVENT DATE: 20210320
